FAERS Safety Report 21500882 (Version 1)
Quarter: 2022Q4

REPORT INFORMATION
  Report Type: Spontaneous
  Country: ES (occurrence: ES)
  Receive Date: 20221025
  Receipt Date: 20221025
  Transmission Date: 20230112
  Serious: Yes (Life-Threatening)
  Sender: FDA-Public Use
  Company Number: ES-LEO Pharma-346286

PATIENT
  Sex: Female

DRUGS (1)
  1. BRODALUMAB [Suspect]
     Active Substance: BRODALUMAB
     Indication: Psoriasis
     Route: 065

REACTIONS (2)
  - Emotional distress [Unknown]
  - Suicidal ideation [Unknown]
